FAERS Safety Report 4598162-9 (Version None)
Quarter: 2005Q1

REPORT INFORMATION
  Report Type: 
  Country: None (occurrence: None)
  Receive Date: 20050301
  Receipt Date: 20050301
  Transmission Date: 20050727
  Serious: Yes (Hospitalization)
  Sender: FDA-Public Use
  Company Number: None

PATIENT
  Age: 78 Year
  Sex: Male
  Weight: 84.8226 kg

DRUGS (11)
  1. CHLORPHENIRAMINE MALEATE [Suspect]
     Indication: HYPERSENSITIVITY
     Dosage: 1 PO Q DAY
     Route: 048
     Dates: start: 20001001
  2. LISINOPRIL [Suspect]
     Indication: BLOOD PRESSURE
     Dosage: 1 PO Q DAY
     Route: 048
     Dates: start: 20010401
  3. SALICYLIC ACID 2/SULFUR 2% SHAMPOO [Concomitant]
  4. QUININE SULFATE [Concomitant]
  5. CYANOCOBALAMIN [Concomitant]
  6. NITROGLYCERIN [Concomitant]
  7. SELENIUM SULFIDE 2.5 LOTION/SHAMPOO [Concomitant]
  8. SIMVASTATIN [Concomitant]
  9. FLUOCINONIDE 0.05% OINT [Concomitant]
  10. MINOCYCLINE HCL [Concomitant]
  11. CLOBETASOL PROPIONATE 0.05% OINT [Concomitant]

REACTIONS (5)
  - BRAIN NATRIURETIC PEPTIDE INCREASED [None]
  - CARDIAC FAILURE CONGESTIVE [None]
  - DEHYDRATION [None]
  - PNEUMONIA PRIMARY ATYPICAL [None]
  - SEPTIC SHOCK [None]
